FAERS Safety Report 13735604 (Version 1)
Quarter: 2017Q3

REPORT INFORMATION
  Report Type: Spontaneous
  Country: US (occurrence: US)
  Receive Date: 20170708
  Receipt Date: 20170708
  Transmission Date: 20171127
  Serious: Yes (Death)
  Sender: FDA-Public Use
  Company Number: None

PATIENT
  Age: 20 Year
  Sex: Male
  Weight: 67.5 kg

DRUGS (1)
  1. AZITHROMYCIN  TABLETS USP [Suspect]
     Active Substance: AZITHROMYCIN ANHYDROUS
     Indication: UPPER RESPIRATORY TRACT INFECTION
     Dosage: ?          OTHER STRENGTH:MG;QUANTITY:6 TABLET(S);?
     Route: 048
     Dates: start: 20170410, end: 20170413

REACTIONS (4)
  - Feeling abnormal [None]
  - Head discomfort [None]
  - Completed suicide [None]
  - Diarrhoea [None]

NARRATIVE: CASE EVENT DATE: 20170410
